FAERS Safety Report 4576799-0 (Version None)
Quarter: 2005Q1

REPORT INFORMATION
  Report Type: 
  Country: None (occurrence: None)
  Receive Date: 20050207
  Receipt Date: 20050126
  Transmission Date: 20050727
  Serious: Yes (Other)
  Sender: FDA-Public Use
  Company Number: 200510377BCC

PATIENT
  Age: 44 Year
  Sex: Male
  Weight: 79.8331 kg

DRUGS (2)
  1. ALEVE [Suspect]
     Indication: ANALGESIC EFFECT
     Dosage: 440-220 MG, BID, ORAL
     Route: 048
     Dates: start: 20050123
  2. EXTRA STRENGTH TYLENOL [Concomitant]

REACTIONS (2)
  - BLOOD PRESSURE INCREASED [None]
  - INJURY [None]
